FAERS Safety Report 23560550 (Version 2)
Quarter: 2024Q1

REPORT INFORMATION
  Report Type: Spontaneous
  Country: US (occurrence: US)
  Receive Date: 20240223
  Receipt Date: 20240320
  Transmission Date: 20240410
  Serious: Yes (Hospitalization, Other)
  Sender: FDA-Public Use
  Company Number: US-ABBVIE-5632730

PATIENT
  Sex: Female

DRUGS (185)
  1. QULIPTA [Suspect]
     Active Substance: ATOGEPANT
     Indication: Migraine
     Route: 048
     Dates: start: 20231115, end: 20231119
  2. QULIPTA [Suspect]
     Active Substance: ATOGEPANT
     Indication: Migraine
     Dosage: DURATION: MONTHS
     Route: 048
     Dates: start: 2023, end: 20231113
  3. TERBINAFINE HYDROCHLORIDE [Concomitant]
     Active Substance: TERBINAFINE HYDROCHLORIDE
     Indication: Infection
     Route: 048
     Dates: start: 20230315
  4. ASPIRIN [Concomitant]
     Active Substance: ASPIRIN
     Indication: Product used for unknown indication
     Dosage: GIVEN 1249
     Route: 048
     Dates: start: 20231113, end: 20231113
  5. ONDANSETRON [Concomitant]
     Active Substance: ONDANSETRON
     Indication: Product used for unknown indication
     Dosage: PRN. GIVEN 0534
     Dates: start: 20231115, end: 20231115
  6. ONDANSETRON [Concomitant]
     Active Substance: ONDANSETRON
     Indication: Product used for unknown indication
     Dosage: PRN. GIVEN 2037
     Route: 042
     Dates: start: 20231119, end: 20231119
  7. ONDANSETRON [Concomitant]
     Active Substance: ONDANSETRON
     Indication: Product used for unknown indication
     Dosage: PRN. GIVEN 0307
     Route: 048
     Dates: start: 20231116, end: 20231116
  8. ONDANSETRON [Concomitant]
     Active Substance: ONDANSETRON
     Indication: Product used for unknown indication
     Dosage: GIVEN 1409
     Route: 042
     Dates: start: 20231116, end: 20231116
  9. ONDANSETRON [Concomitant]
     Active Substance: ONDANSETRON
     Indication: Product used for unknown indication
     Dosage: 8 MG Q12H PRN. THERAPY DATES UNKNOWN
     Route: 048
  10. ONDANSETRON [Concomitant]
     Active Substance: ONDANSETRON
     Indication: Product used for unknown indication
     Dosage: PRN. GIVEN 0031
     Route: 042
     Dates: start: 20231117, end: 20231117
  11. ONDANSETRON [Concomitant]
     Active Substance: ONDANSETRON
     Indication: Product used for unknown indication
     Dosage: PRN. GIVEN 0657
     Route: 042
     Dates: start: 20231117, end: 20231117
  12. ONDANSETRON [Concomitant]
     Active Substance: ONDANSETRON
     Indication: Product used for unknown indication
     Dosage: PRN. GIVEN 0542
     Route: 042
     Dates: start: 20231118, end: 20231118
  13. ONDANSETRON [Concomitant]
     Active Substance: ONDANSETRON
     Indication: Product used for unknown indication
     Dosage: PRN. GIVEN 0356
     Route: 042
     Dates: start: 20231119, end: 20231119
  14. ONDANSETRON [Concomitant]
     Active Substance: ONDANSETRON
     Indication: Product used for unknown indication
     Dosage: PRN. GIVEN 0832
     Route: 042
     Dates: start: 20231119, end: 20231119
  15. ONDANSETRON [Concomitant]
     Active Substance: ONDANSETRON
     Indication: Product used for unknown indication
     Dosage: PRN. GIVEN 1420
     Route: 042
     Dates: start: 20231119, end: 20231119
  16. ONDANSETRON [Concomitant]
     Active Substance: ONDANSETRON
     Indication: Product used for unknown indication
     Dosage: GIVEN 1249
     Route: 042
     Dates: start: 20231113, end: 20231113
  17. ONDANSETRON [Concomitant]
     Active Substance: ONDANSETRON
     Indication: Product used for unknown indication
     Dosage: PRN. GIVEN 0441
     Route: 042
     Dates: start: 20231120, end: 20231120
  18. PROTONIX [Concomitant]
     Active Substance: PANTOPRAZOLE SODIUM
     Indication: Gastrointestinal disorder
     Dosage: 1 TABLET TWO TIMES DAILY. THERAPY DATES UNKNOWN
     Dates: start: 202310
  19. AMPHETAMINE [Concomitant]
     Active Substance: AMPHETAMINE
     Indication: Product used for unknown indication
     Dosage: THERAPY DATES, FREQUENCY, INSTRUCTIONS UNKNOWN
  20. HYDROCHLOROTHIAZIDE [Concomitant]
     Active Substance: HYDROCHLOROTHIAZIDE
     Indication: Cardiac disorder
     Dates: start: 202310
  21. VALSARTAN [Concomitant]
     Active Substance: VALSARTAN
     Indication: Cardiac disorder
     Dosage: THERAPY DATES, FREQUENCY, INSTRUCTIONS UNKNOWN
  22. MAALOX ANTACID [Concomitant]
     Active Substance: ALUMINUM HYDROXIDE\DIMETHICONE\MAGNESIUM HYDROXIDE
     Indication: Product used for unknown indication
     Dosage: ONCE. GIVEN 0055
     Route: 048
     Dates: start: 20231118, end: 20231118
  23. NORTRIPTYLINE [Concomitant]
     Active Substance: NORTRIPTYLINE
     Indication: Product used for unknown indication
     Dosage: AT BEDTIME. GIVEN 2025
     Route: 048
     Dates: start: 20231116, end: 20231116
  24. NORTRIPTYLINE [Concomitant]
     Active Substance: NORTRIPTYLINE
     Indication: Product used for unknown indication
     Dosage: AT BEDTIME. GIVEN 2011
     Route: 048
     Dates: start: 20231118, end: 20231118
  25. NORTRIPTYLINE [Concomitant]
     Active Substance: NORTRIPTYLINE
     Indication: Product used for unknown indication
     Route: 048
     Dates: start: 20231119, end: 20231119
  26. NORTRIPTYLINE [Concomitant]
     Active Substance: NORTRIPTYLINE
     Indication: Product used for unknown indication
     Dosage: NIGHTLY. THERAPY DATES UNKNOWN
     Route: 048
     Dates: start: 202311
  27. NORTRIPTYLINE [Concomitant]
     Active Substance: NORTRIPTYLINE
     Indication: Product used for unknown indication
     Dosage: AT BEDTIME. GIVEN 22:53
     Route: 048
     Dates: start: 20231114, end: 20231114
  28. NORTRIPTYLINE [Concomitant]
     Active Substance: NORTRIPTYLINE
     Indication: Product used for unknown indication
     Dosage: AT BEDTIME. GIVEN 2021
     Route: 048
     Dates: start: 20231115, end: 20231115
  29. NORTRIPTYLINE [Concomitant]
     Active Substance: NORTRIPTYLINE
     Indication: Product used for unknown indication
     Dosage: AT BEDTIME. GIVEN 2056
     Dates: start: 20231117, end: 20231117
  30. NORTRIPTYLINE [Concomitant]
     Active Substance: NORTRIPTYLINE
     Indication: Product used for unknown indication
     Dosage: AT BEDTIME. GIVEN 2025
     Route: 048
     Dates: start: 20231120, end: 20231120
  31. TRIAMCINOLONE [Concomitant]
     Active Substance: TRIAMCINOLONE
     Indication: Product used for unknown indication
     Dosage: UNDER BREAST BID. GIVEN 0912. PT REFUSED 16 NOV 2023 AT 2032, 17 NOV 2023 AT 2236, 20 NOV 2023 AT...
     Dates: start: 20231116, end: 20231116
  32. TRIAMCINOLONE [Concomitant]
     Active Substance: TRIAMCINOLONE
     Indication: Product used for unknown indication
     Dosage: UNDER BREAST BID. GIVEN 0938. PT REFUSED 16 NOV 2023 AT 2032, 17 NOV 2023 AT 2236, 20 NOV 2023 AT...
     Route: 061
     Dates: start: 20231118, end: 20231118
  33. TRIAMCINOLONE [Concomitant]
     Active Substance: TRIAMCINOLONE
     Indication: Product used for unknown indication
     Dosage: UNDER BREAST BID. GIVEN 2014. PT REFUSED 16 NOV 2023 AT 2032, 17 NOV 2023 AT 2236, 20 NOV 2023 AT...
     Route: 061
     Dates: start: 20231118, end: 20231118
  34. TRIAMCINOLONE [Concomitant]
     Active Substance: TRIAMCINOLONE
     Indication: Product used for unknown indication
     Dosage: UNDER BREAST TWICE DAILY. GIVEN 2215. PT REFUSED 16 NOV 2023 AT 2032, 17 NOV 2023 AT 2236, 20 NOV...
     Route: 061
     Dates: start: 20231115, end: 20231115
  35. TRIAMCINOLONE [Concomitant]
     Active Substance: TRIAMCINOLONE
     Indication: Product used for unknown indication
     Dosage: UNDER BREAST BID. GIVEN 0833. PT REFUSED 16 NOV 2023 AT 2032, 17 NOV 2023 AT 2236, 20 NOV 2023 AT...
     Route: 061
     Dates: start: 20231119, end: 20231119
  36. TRIAMCINOLONE [Concomitant]
     Active Substance: TRIAMCINOLONE
     Indication: Product used for unknown indication
     Dosage: UNDER BREAST BID. GIVEN 2038. PT REFUSED 16 NOV 2023 AT 2032, 17 NOV 2023 AT 2236, 20 NOV 2023 AT...
     Route: 061
     Dates: start: 20231119, end: 20231119
  37. TRIAMCINOLONE [Concomitant]
     Active Substance: TRIAMCINOLONE
     Indication: Product used for unknown indication
     Dosage: UNDER BREAST BID. GIVEN 1200. PT REFUSED 16 NOV 2023 AT 2032, 17 NOV 2023 AT 2236, 20 NOV 2023 AT...
     Route: 061
     Dates: start: 20231120, end: 20231120
  38. MELATONIN [Concomitant]
     Active Substance: MELATONIN
     Indication: Product used for unknown indication
     Dosage: AT BEDTIME. GIVEN 2025
     Route: 048
     Dates: start: 20231116, end: 20231116
  39. MELATONIN [Concomitant]
     Active Substance: MELATONIN
     Indication: Product used for unknown indication
     Dosage: AT BEDTIME. GIVEN 2011
     Route: 048
     Dates: start: 20231118, end: 20231118
  40. MELATONIN [Concomitant]
     Active Substance: MELATONIN
     Indication: Product used for unknown indication
     Dosage: AT BEDTIME. GIVEN 2037
     Route: 048
     Dates: start: 20231119, end: 20231119
  41. MELATONIN [Concomitant]
     Active Substance: MELATONIN
     Indication: Product used for unknown indication
     Dosage: AT BEDTIME. GIVEN 2056
     Route: 048
     Dates: start: 20231117, end: 20231117
  42. MELATONIN [Concomitant]
     Active Substance: MELATONIN
     Indication: Product used for unknown indication
     Dosage: AT BEDTIME. GIVEN 2025
     Route: 048
     Dates: start: 20231120, end: 20231120
  43. MELATONIN [Concomitant]
     Active Substance: MELATONIN
     Indication: Product used for unknown indication
     Route: 042
     Dates: start: 20231121, end: 20231126
  44. OMEPRAZOLE [Concomitant]
     Active Substance: OMEPRAZOLE
     Indication: Product used for unknown indication
     Dosage: BID BEFORE MEALS. GIVEN 0657
     Route: 048
     Dates: start: 20231118, end: 20231118
  45. OMEPRAZOLE [Concomitant]
     Active Substance: OMEPRAZOLE
     Indication: Product used for unknown indication
     Dosage: BID BEFORE MEALS. GIVEN 1830
     Route: 048
     Dates: start: 20231118, end: 20231118
  46. OMEPRAZOLE [Concomitant]
     Active Substance: OMEPRAZOLE
     Indication: Product used for unknown indication
     Dosage: BID BEFORE MEALS. GIVEN 0506
     Route: 048
     Dates: start: 20231119, end: 20231119
  47. OMEPRAZOLE [Concomitant]
     Active Substance: OMEPRAZOLE
     Indication: Product used for unknown indication
     Dosage: BID BEFORE MEALS. GIVEN 1800
     Route: 048
     Dates: start: 20231117, end: 20231117
  48. OMEPRAZOLE [Concomitant]
     Active Substance: OMEPRAZOLE
     Indication: Product used for unknown indication
     Dosage: BID BEFORE MEALS. GIVEN 1818
     Route: 048
     Dates: start: 20231119, end: 20231119
  49. OMEPRAZOLE [Concomitant]
     Active Substance: OMEPRAZOLE
     Indication: Product used for unknown indication
     Dosage: BID BEFORE MEALS. GIVEN 0647
     Route: 048
     Dates: start: 20231120, end: 20231120
  50. OMEPRAZOLE [Concomitant]
     Active Substance: OMEPRAZOLE
     Indication: Product used for unknown indication
     Dosage: BID BEFORE MEALS. GIVEN 1714
     Dates: start: 20231120, end: 20231120
  51. XERAVA [Concomitant]
     Active Substance: ERAVACYCLINE DIHYDROCHLORIDE
     Indication: Clostridium difficile infection
     Dosage: IN SODIUM CHLORIDE 0.9 % IVPB. GIVEN 0859
     Dates: start: 20231120, end: 20231120
  52. XERAVA [Concomitant]
     Active Substance: ERAVACYCLINE DIHYDROCHLORIDE
     Indication: Clostridium difficile infection
     Dosage: IN SODIUM CHLORIDE 0.9 % IVPB. GIVEN 0817
     Dates: start: 20231121, end: 20231121
  53. XERAVA [Concomitant]
     Active Substance: ERAVACYCLINE DIHYDROCHLORIDE
     Indication: Clostridium difficile infection
     Dosage: IN SODIUM CHLORIDE 0.9 % IVPB. GIVEN 0831
     Dates: start: 20231122, end: 20231122
  54. ALBUMIN HUMAN [Concomitant]
     Active Substance: ALBUMIN HUMAN
     Indication: Hepatorenal syndrome
     Dosage: 25G X 3 BAGS FOR TOTAL DAILY DOSE OF 75G. GIVEN 1030, 1311, 1350
     Dates: start: 20231120, end: 20231120
  55. CEFEPIME [Concomitant]
     Active Substance: CEFEPIME HYDROCHLORIDE
     Indication: Product used for unknown indication
     Dosage: IVPB. GIVEN 1056
     Dates: start: 20231120, end: 20231120
  56. CEFEPIME [Concomitant]
     Active Substance: CEFEPIME HYDROCHLORIDE
     Indication: Product used for unknown indication
     Dosage: IVPB. GIVEN 0913
     Dates: start: 20231121, end: 20231121
  57. CEFEPIME [Concomitant]
     Active Substance: CEFEPIME HYDROCHLORIDE
     Indication: Product used for unknown indication
     Dosage: IVPB. GIVEN 2159
     Dates: start: 20231120, end: 20231120
  58. CEFEPIME [Concomitant]
     Active Substance: CEFEPIME HYDROCHLORIDE
     Indication: Product used for unknown indication
     Dosage: GIVEN 1859, 2159
     Dates: start: 20231126, end: 20231126
  59. CEFEPIME [Concomitant]
     Active Substance: CEFEPIME HYDROCHLORIDE
     Indication: Product used for unknown indication
     Dosage: GIVEN 0059
     Dates: start: 20231127, end: 20231127
  60. CEFEPIME [Concomitant]
     Active Substance: CEFEPIME HYDROCHLORIDE
     Indication: Product used for unknown indication
     Dates: start: 20231127
  61. OCTREOTIDE [Concomitant]
     Active Substance: OCTREOTIDE\OCTREOTIDE ACETATE
     Indication: Product used for unknown indication
     Dosage: 100MCG SQ Q8H. GIVEN 1201, 1727
     Route: 058
     Dates: start: 20231120, end: 20231120
  62. OCTREOTIDE [Concomitant]
     Active Substance: OCTREOTIDE\OCTREOTIDE ACETATE
     Indication: Product used for unknown indication
     Dosage: 100MCG SQ Q8H. GIVEN 0342, 1929
     Route: 058
     Dates: start: 20231121, end: 20231121
  63. OCTREOTIDE [Concomitant]
     Active Substance: OCTREOTIDE\OCTREOTIDE ACETATE
     Indication: Product used for unknown indication
     Route: 058
     Dates: start: 20231122, end: 20231122
  64. OCTREOTIDE [Concomitant]
     Active Substance: OCTREOTIDE\OCTREOTIDE ACETATE
     Indication: Product used for unknown indication
     Dosage: 100MCG SQ Q8H. GIVEN 1111
     Dates: start: 20231121, end: 20231121
  65. VANCOCIN [Concomitant]
     Active Substance: VANCOMYCIN HYDROCHLORIDE
     Indication: Product used for unknown indication
     Dosage: 1 G IN D5W. GIVEN 1313
     Dates: start: 20231120, end: 20231120
  66. VANCOCIN [Concomitant]
     Active Substance: VANCOMYCIN HYDROCHLORIDE
     Indication: Product used for unknown indication
     Dosage: 50 MG/ML SOLUTION 500 MG, QID. GIVEN 0342
     Route: 048
     Dates: start: 20231121, end: 20231121
  67. VANCOCIN [Concomitant]
     Active Substance: VANCOMYCIN HYDROCHLORIDE
     Indication: Product used for unknown indication
     Dosage: 500 MG IN DEXTROSE D5W IVPB PREMIX. GIVEN 0907
     Route: 048
     Dates: start: 20231121, end: 20231121
  68. VANCOCIN [Concomitant]
     Active Substance: VANCOMYCIN HYDROCHLORIDE
     Indication: Product used for unknown indication
     Dosage: 50 MG/ML SOLUTION 500 MG, QID. GIVEN 1112, 1929
     Route: 048
     Dates: start: 20231121, end: 20231121
  69. VANCOCIN [Concomitant]
     Active Substance: VANCOMYCIN HYDROCHLORIDE
     Indication: Product used for unknown indication
     Dosage: 50 MG/ML SOLUTION 500 MG, QID. GIVEN 0055, 0621
     Dates: start: 20231122, end: 20231122
  70. FAMOTIDINE [Concomitant]
     Active Substance: FAMOTIDINE
     Indication: Product used for unknown indication
     Dates: start: 202310
  71. FAMOTIDINE [Concomitant]
     Active Substance: FAMOTIDINE
     Indication: Product used for unknown indication
     Dosage: GIVEN 2207
     Route: 048
     Dates: start: 20231116, end: 20231116
  72. FAMOTIDINE [Concomitant]
     Active Substance: FAMOTIDINE
     Indication: Product used for unknown indication
     Dosage: GIVEN 1250
     Route: 042
     Dates: start: 20231113, end: 20231113
  73. FAMOTIDINE [Concomitant]
     Active Substance: FAMOTIDINE
     Indication: Product used for unknown indication
     Dosage: GIVEN 2254
     Route: 048
     Dates: start: 20231114, end: 20231114
  74. FAMOTIDINE [Concomitant]
     Active Substance: FAMOTIDINE
     Indication: Product used for unknown indication
     Route: 048
     Dates: start: 20231115, end: 20231115
  75. SODIUM CHLORIDE [Concomitant]
     Active Substance: SODIUM CHLORIDE
     Indication: Product used for unknown indication
     Dosage: BOLUS OVER 60 MIN. GIVEN 0425
     Route: 042
     Dates: start: 20231119, end: 20231119
  76. SODIUM CHLORIDE [Concomitant]
     Active Substance: SODIUM CHLORIDE
     Indication: Product used for unknown indication
     Dosage: BOLUS. GIVEN 1250
     Route: 042
     Dates: start: 20231113, end: 20231113
  77. SODIUM CHLORIDE [Concomitant]
     Active Substance: SODIUM CHLORIDE
     Indication: Product used for unknown indication
     Dosage: GIVEN 1450. NACL CONTINUOUS INFUSION AT 75 ML/HR FOR 12 HRS
     Dates: start: 20231117, end: 20231117
  78. CEFTRIAXONE [Concomitant]
     Active Substance: CEFTRIAXONE\CEFTRIAXONE SODIUM
     Indication: Product used for unknown indication
     Dosage: Q24HRS. GIVEN 1616
     Route: 042
     Dates: start: 20231118, end: 20231118
  79. CEFTRIAXONE [Concomitant]
     Active Substance: CEFTRIAXONE\CEFTRIAXONE SODIUM
     Indication: Product used for unknown indication
     Dosage: Q24HRS. GIVEN 1447
     Route: 042
     Dates: start: 20231119, end: 20231119
  80. CEFTRIAXONE [Concomitant]
     Active Substance: CEFTRIAXONE\CEFTRIAXONE SODIUM
     Indication: Product used for unknown indication
     Dosage: GIVEN 1406
     Route: 042
     Dates: start: 20231116, end: 20231116
  81. CEFTRIAXONE [Concomitant]
     Active Substance: CEFTRIAXONE\CEFTRIAXONE SODIUM
     Indication: Product used for unknown indication
     Dosage: QD. GIVEN 1400
     Route: 042
     Dates: start: 20231117, end: 20231117
  82. CEFTRIAXONE [Concomitant]
     Active Substance: CEFTRIAXONE\CEFTRIAXONE SODIUM
     Indication: Product used for unknown indication
     Dosage: Q24HRS. GIVEN 14:23-15:50
     Route: 042
     Dates: start: 20231113, end: 20231113
  83. CEFTRIAXONE [Concomitant]
     Active Substance: CEFTRIAXONE\CEFTRIAXONE SODIUM
     Indication: Product used for unknown indication
     Dosage: Q24HRS. GIVEN 12:51-18:39
     Dates: start: 20231114, end: 20231114
  84. CEFTRIAXONE [Concomitant]
     Active Substance: CEFTRIAXONE\CEFTRIAXONE SODIUM
     Indication: Product used for unknown indication
     Dosage: Q24HRS. GIVEN 1203
     Route: 042
     Dates: start: 20231115, end: 20231115
  85. METRONIDAZOLE [Concomitant]
     Active Substance: METRONIDAZOLE
     Indication: Product used for unknown indication
     Dosage: GIVEN 0223
     Route: 042
     Dates: start: 20231116, end: 20231116
  86. METRONIDAZOLE [Concomitant]
     Active Substance: METRONIDAZOLE
     Indication: Product used for unknown indication
     Dosage: GIVEN 0945, 1731
     Route: 048
     Dates: start: 20231116, end: 20231116
  87. METRONIDAZOLE [Concomitant]
     Active Substance: METRONIDAZOLE
     Indication: Product used for unknown indication
     Dosage: GIVEN 0156
     Route: 048
     Dates: start: 20231117, end: 20231117
  88. METRONIDAZOLE [Concomitant]
     Active Substance: METRONIDAZOLE
     Indication: Product used for unknown indication
     Dosage: GIVEN 1023
     Route: 048
     Dates: start: 20231117, end: 20231117
  89. METRONIDAZOLE [Concomitant]
     Active Substance: METRONIDAZOLE
     Indication: Product used for unknown indication
     Dosage: GIVEN 1800
     Route: 048
     Dates: start: 20231118, end: 20231118
  90. METRONIDAZOLE [Concomitant]
     Active Substance: METRONIDAZOLE
     Indication: Product used for unknown indication
     Dosage: GIVEN 0147
     Route: 048
     Dates: start: 20231119, end: 20231119
  91. METRONIDAZOLE [Concomitant]
     Active Substance: METRONIDAZOLE
     Indication: Product used for unknown indication
     Dosage: GIVEN 10:35, 18:47
     Route: 042
     Dates: start: 20231114, end: 20231114
  92. METRONIDAZOLE [Concomitant]
     Active Substance: METRONIDAZOLE
     Indication: Product used for unknown indication
     Dosage: Q8H. GIVEN 18:30-23:29
     Route: 042
     Dates: start: 20231113, end: 20231113
  93. METRONIDAZOLE [Concomitant]
     Active Substance: METRONIDAZOLE
     Indication: Product used for unknown indication
     Dosage: GIVEN 0307, 1018, 1802
     Route: 042
     Dates: start: 20231115, end: 20231115
  94. METRONIDAZOLE [Concomitant]
     Active Substance: METRONIDAZOLE
     Indication: Product used for unknown indication
     Dosage: GIVEN 0832
     Route: 048
     Dates: start: 20231119, end: 20231119
  95. METRONIDAZOLE [Concomitant]
     Active Substance: METRONIDAZOLE
     Indication: Product used for unknown indication
     Dosage: GIVEN 1611
     Route: 042
     Dates: start: 20231119, end: 20231119
  96. METRONIDAZOLE [Concomitant]
     Active Substance: METRONIDAZOLE
     Indication: Product used for unknown indication
     Dosage: GIVEN 2319
     Route: 042
     Dates: start: 20231119, end: 20231119
  97. METRONIDAZOLE [Concomitant]
     Active Substance: METRONIDAZOLE
     Indication: Product used for unknown indication
     Dosage: GIVEN 0647
     Route: 042
     Dates: start: 20231119, end: 20231119
  98. METRONIDAZOLE [Concomitant]
     Active Substance: METRONIDAZOLE
     Indication: Product used for unknown indication
     Dosage: GIVEN 1900
     Route: 048
     Dates: start: 20231117, end: 20231117
  99. METRONIDAZOLE [Concomitant]
     Active Substance: METRONIDAZOLE
     Indication: Product used for unknown indication
     Dosage: 500 MG IN SODIUM CHLORIDE IVPB GIVEN 1829
     Dates: start: 20231126, end: 20231126
  100. METRONIDAZOLE [Concomitant]
     Active Substance: METRONIDAZOLE
     Indication: Product used for unknown indication
     Dosage: 500 MG IN SODIUM CHLORIDE IVPB GIVEN 0031
     Dates: start: 20231127, end: 20231127
  101. METRONIDAZOLE [Concomitant]
     Active Substance: METRONIDAZOLE
     Indication: Product used for unknown indication
     Dosage: 500 MG IN SODIUM CHLORIDE IVPB QD GIVEN 1829
     Dates: start: 20231127
  102. LACTULOSE [Concomitant]
     Active Substance: LACTULOSE
     Indication: Product used for unknown indication
     Dosage: GIVEN 18:47
     Route: 048
     Dates: start: 20231113, end: 20231113
  103. LACTULOSE [Concomitant]
     Active Substance: LACTULOSE
     Indication: Product used for unknown indication
     Dosage: DOSES NOT GIVEN ON 17 NOV 2023, 18 NOV 2023
     Dates: start: 20231114, end: 20231119
  104. LACTATED RINGERS SOLUTION [Concomitant]
     Active Substance: CALCIUM CHLORIDE\POTASSIUM CHLORIDE\SODIUM CHLORIDE\SODIUM LACTATE
     Indication: Product used for unknown indication
     Dosage: CONTINUOUS INFUSION AT 75 ML/HR FOR 12HR. GIVEN 1330
     Route: 042
     Dates: start: 20231118, end: 20231118
  105. LACTATED RINGERS SOLUTION [Concomitant]
     Active Substance: CALCIUM CHLORIDE\POTASSIUM CHLORIDE\SODIUM CHLORIDE\SODIUM LACTATE
     Indication: Product used for unknown indication
     Dosage: BOLUS 100ML/HR FOR 1 HR. GIVEN 1404
     Route: 042
     Dates: start: 20231119, end: 20231119
  106. LACTATED RINGERS SOLUTION [Concomitant]
     Active Substance: CALCIUM CHLORIDE\POTASSIUM CHLORIDE\SODIUM CHLORIDE\SODIUM LACTATE
     Indication: Product used for unknown indication
     Dosage: CONTINUOUS INFUSION AT 50 ML/HR FOR 24HR. GIVEN 1203
     Route: 042
     Dates: start: 20231115, end: 20231115
  107. LACTATED RINGERS SOLUTION [Concomitant]
     Active Substance: CALCIUM CHLORIDE\POTASSIUM CHLORIDE\SODIUM CHLORIDE\SODIUM LACTATE
     Indication: Product used for unknown indication
     Dosage: CONTINUOUS INFUSION IV AT 75 ML/HR. GIVEN 08:34-18:24
     Dates: start: 20231114, end: 20231114
  108. PROPRANOLOL [Concomitant]
     Active Substance: PROPRANOLOL HYDROCHLORIDE
     Indication: Product used for unknown indication
     Dosage: HOLD FOR SBP {110 OR HR {60. GIVEN 0918
     Route: 048
     Dates: start: 20231120, end: 20231120
  109. CALCIUM GLUCONATE [Concomitant]
     Active Substance: CALCIUM GLUCONATE
     Indication: Product used for unknown indication
     Dosage: 3 G IN SODIUM CHLORIDE ONE DOSE
     Route: 042
     Dates: start: 20231120, end: 20231120
  110. CALCIUM GLUCONATE [Concomitant]
     Active Substance: CALCIUM GLUCONATE
     Indication: Product used for unknown indication
     Dosage: 2 G IN SODIUM CHLORIDE ONE DOSE. GIVEN 0324
     Route: 042
     Dates: start: 20231121, end: 20231121
  111. CALCIUM GLUCONATE [Concomitant]
     Active Substance: CALCIUM GLUCONATE
     Indication: Product used for unknown indication
     Dosage: 1 G IN SODIUM CHLORIDE IVPB PREMIX ONE DOSE. GIVEN 1545
     Dates: start: 20231121, end: 20231121
  112. CALCIUM GLUCONATE [Concomitant]
     Active Substance: CALCIUM GLUCONATE
     Indication: Product used for unknown indication
     Dosage: 1 G IN 0.9% SODIUM CHLORIDE IVPB PREMIX
     Dates: start: 20231125, end: 20231125
  113. NYSTATIN [Concomitant]
     Active Substance: NYSTATIN
     Indication: Product used for unknown indication
     Dosage: 100,000 UNIT/G BID UNDER BREASTS. GIVEN 0938. REFUSED 16 NOV 2023 AT 2025, 17 NOV 2023 AT 2057, 2...
     Route: 061
     Dates: start: 20231118, end: 20231118
  114. NYSTATIN [Concomitant]
     Active Substance: NYSTATIN
     Indication: Product used for unknown indication
     Dosage: 100,000 UNIT/G BID UNDER BREASTS. GIVEN 2014. REFUSED 16 NOV 2023 AT 2025, 17 NOV 2023 AT 2057, 2...
     Route: 061
     Dates: start: 20231118, end: 20231118
  115. NYSTATIN [Concomitant]
     Active Substance: NYSTATIN
     Indication: Product used for unknown indication
     Dosage: 100,000 UNIT/G BID UNDER BREASTS. GIVEN 0833. REFUSED 16 NOV 2023 AT 2025, 17 NOV 2023 AT 2057, 2...
     Route: 061
     Dates: start: 20231119, end: 20231119
  116. NYSTATIN [Concomitant]
     Active Substance: NYSTATIN
     Indication: Product used for unknown indication
     Dosage: 100,000 UNIT/G BID UNDER BREASTS. GIVEN 2038. REFUSED 16 NOV 2023 AT 2025, 17 NOV 2023 AT 2057, 2...
     Route: 050
     Dates: start: 20231119, end: 20231119
  117. NYSTATIN [Concomitant]
     Active Substance: NYSTATIN
     Indication: Product used for unknown indication
     Dosage: 100,000 UNIT/G BID UNDER BREASTS. GIVEN 1159. REFUSED 16 NOV 2023 AT 2025, 17 NOV 2023 AT 2057, 2...
     Route: 061
     Dates: start: 20231120, end: 20231120
  118. NYSTATIN [Concomitant]
     Active Substance: NYSTATIN
     Indication: Product used for unknown indication
     Dosage: 100,000 UNIT/G BID UNDER BREASTS. GIVEN 2215. REFUSED 16 NOV 2023 AT 2025, 17 NOV 2023 AT 2057, 2...
     Route: 061
     Dates: start: 20231115, end: 20231115
  119. NYSTATIN [Concomitant]
     Active Substance: NYSTATIN
     Indication: Product used for unknown indication
     Dosage: 100,000 UNIT/G BID UNDER BREASTS. GIVEN 0912. REFUSED 16 NOV 2023 AT 2025, 17 NOV 2023 AT 2057, 2...
     Route: 061
     Dates: start: 20231116, end: 20231116
  120. NYSTATIN [Concomitant]
     Active Substance: NYSTATIN
     Indication: Product used for unknown indication
     Dosage: 100,000 UNIT/G BID UNDER BREASTS. GIVEN 0900. REFUSED 16 NOV 2023 AT 2025, 17 NOV 2023 AT 2057, 2...
     Route: 061
     Dates: start: 20231117, end: 20231117
  121. INSULIN NOS [Concomitant]
     Active Substance: INSULIN NOS
     Indication: Hyperkalaemia
     Dosage: 7 UNITS ONCE, AFTER DEXTROSE ADMINISTRATION. GIVEN 0638
     Route: 058
     Dates: start: 20231119, end: 20231119
  122. INSULIN NOS [Concomitant]
     Active Substance: INSULIN NOS
     Indication: Hyperkalaemia
     Dosage: 7 UNITS ONCE, AFTER DEXTROSE ADMINISTRATION. GIVEN 1203
     Route: 058
     Dates: start: 20231120, end: 20231120
  123. NORCO [Concomitant]
     Active Substance: ACETAMINOPHEN\HYDROCODONE BITARTRATE
     Indication: Product used for unknown indication
     Dosage: 5-325 MG PER TABLET. 1 TABLET ONCE. GIVEN 2037
     Route: 048
     Dates: start: 20231119, end: 20231119
  124. SODIUM BICARBONATE [Concomitant]
     Active Substance: SODIUM BICARBONATE
     Indication: Product used for unknown indication
     Dosage: 150 MEQ IN D5W INFUSION 100 ML/HR. GIVEN 0732-0033
     Dates: start: 20231120, end: 20231120
  125. SODIUM BICARBONATE [Concomitant]
     Active Substance: SODIUM BICARBONATE
     Indication: Product used for unknown indication
     Dosage: 50 MEQ INJECTION ONCE. GIVEN 1203
     Dates: start: 20231120, end: 20231120
  126. SODIUM BICARBONATE [Concomitant]
     Active Substance: SODIUM BICARBONATE
     Indication: Product used for unknown indication
     Dosage: 150 MEQ IN D5W AT 100 ML/HR THEN 50 ML/HR. GIVEN 0241-0643
     Dates: start: 20231121, end: 20231121
  127. VANCOMYCIN [Concomitant]
     Active Substance: VANCOMYCIN
     Indication: Clostridium difficile infection
     Dosage: GIVEN 0859
     Route: 048
     Dates: start: 20231120, end: 20231120
  128. VANCOMYCIN [Concomitant]
     Active Substance: VANCOMYCIN
     Indication: Clostridium difficile infection
     Dosage: GIVEN 1430
     Route: 048
     Dates: start: 20231120, end: 20231120
  129. Acetatodote [Concomitant]
     Indication: Hepatic failure
     Dosage: 13.88G IN D5W IV/24H. DOSE 1. GIVEN 1714
     Dates: start: 20231120, end: 20231120
  130. Acetatodote [Concomitant]
     Indication: Hepatic failure
     Dosage: 10.24G IN D5W IV/24H. DOSE 2. GIVEN 2159
     Dates: start: 20231120, end: 20231120
  131. Acetatodote [Concomitant]
     Indication: Hepatic failure
     Dosage: 10.24G IN D5W IV/24H. DOSE 2. GIVEN 0314
     Dates: start: 20231121, end: 20231121
  132. Acetatodote [Concomitant]
     Indication: Hepatic failure
     Dosage: 10.24G IN D5W IV/24H. DOSE 2. GIVEN 0247-2359
     Dates: start: 20231122, end: 20231122
  133. Acetatodote [Concomitant]
     Indication: Hepatic failure
     Dosage: 10.24G IN D5W IV/24H. DOSE 2. GIVEN 0000-0247
     Dates: start: 20231123, end: 20231123
  134. PHYTONADIONE [Concomitant]
     Active Substance: PHYTONADIONE
     Indication: Product used for unknown indication
     Dosage: ONCE. GIVEN 1722
     Route: 042
     Dates: start: 20231120, end: 20231120
  135. UBRELVY [Suspect]
     Active Substance: UBROGEPANT
     Indication: Migraine
     Dosage: ORDERED FOR 2 DAYS, MAY USE HOME MEDICATION
     Dates: start: 20231120, end: 20231120
  136. UBRELVY [Suspect]
     Active Substance: UBROGEPANT
     Indication: Migraine
     Dosage: PRN, ONLY 1 DOSE GIVEN 0750
     Route: 048
     Dates: start: 20231121, end: 20231121
  137. MAGNESIUM SULFATE [Concomitant]
     Active Substance: MAGNESIUM SULFATE\MAGNESIUM SULFATE HEPTAHYDRATE
     Indication: Product used for unknown indication
     Dosage: 1G IN D5W IVPB ONCE. GIVEN 1617
     Dates: start: 20231120, end: 20231120
  138. MAGNESIUM SULFATE [Concomitant]
     Active Substance: MAGNESIUM SULFATE\MAGNESIUM SULFATE HEPTAHYDRATE
     Indication: Product used for unknown indication
     Dosage: 2G IN 50ML STERILE WATER. GIVEN 2202-0000
  139. AQUAMEPHYTON [Concomitant]
     Active Substance: PHYTONADIONE
     Indication: Product used for unknown indication
     Dosage: 10 MG IN NACL 0.9 % IVPB OVER 30 MINS. GIVEN 0817
     Dates: start: 20231121, end: 20231121
  140. ZOVIRAX [Concomitant]
     Active Substance: ACYCLOVIR
     Indication: Product used for unknown indication
     Dosage: 115 MG IN SODIUM CHLORIDE 0.9 % IVPB. GIVEN 1438
     Dates: start: 20231121, end: 20231121
  141. ZOVIRAX [Concomitant]
     Active Substance: ACYCLOVIR
     Indication: Product used for unknown indication
     Dosage: 230 MG IN SODIUM CHLORIDE 0.9 % IVPB. GIVEN 0928
     Dates: start: 20231122, end: 20231122
  142. ZOVIRAX [Concomitant]
     Active Substance: ACYCLOVIR
     Indication: Product used for unknown indication
     Route: 048
     Dates: start: 20231127, end: 20231129
  143. ZOVIRAX [Concomitant]
     Active Substance: ACYCLOVIR
     Indication: Product used for unknown indication
     Route: 048
     Dates: start: 20231129, end: 20240115
  144. ATIVAN [Concomitant]
     Active Substance: LORAZEPAM
     Indication: Product used for unknown indication
     Dosage: ONCE. GIVEN 0030
     Route: 048
     Dates: start: 20231122, end: 20231122
  145. CALCIUM CHLORIDE [Concomitant]
     Active Substance: CALCIUM CHLORIDE
     Indication: Product used for unknown indication
     Dosage: 10 G IN NACL 0.9% 500 ML SOLUTION FOR SLED ROUTE: DIALYSIS. GIVEN 0356-1900
     Dates: start: 20231122, end: 20231122
  146. CALCIUM CHLORIDE [Concomitant]
     Active Substance: CALCIUM CHLORIDE
     Indication: Product used for unknown indication
     Dosage: 10 G IN NACL 0.9% 500 ML SOLUTION FOR SLED ROUTE: DIALYSIS. GIVEN 0356-1900. INITIAL RATE: 43 ML/...
     Dates: start: 20231122, end: 20231123
  147. ROBAXIN [Concomitant]
     Active Substance: METHOCARBAMOL
     Indication: Pain management
     Route: 048
  148. BACTRIM [Concomitant]
     Active Substance: SULFAMETHOXAZOLE\TRIMETHOPRIM
     Indication: Antibiotic prophylaxis
     Dosage: 800-160 MG, 1 TABLET QD ON MWF
     Route: 048
  149. ZOSYN [Concomitant]
     Active Substance: PIPERACILLIN SODIUM\TAZOBACTAM SODIUM
     Indication: Urogenital disorder
     Dosage: 4.5 G IN SODIUM CHLORIDE 0.9 % IVPB Q12H
     Dates: start: 20231201, end: 20231221
  150. XIFAXAN [Concomitant]
     Active Substance: RIFAXIMIN
     Indication: Product used for unknown indication
     Dosage: GIVEN 2025
     Route: 048
     Dates: start: 20231120, end: 20231120
  151. XIFAXAN [Concomitant]
     Active Substance: RIFAXIMIN
     Indication: Product used for unknown indication
     Dosage: GIVEN 2125
     Route: 048
     Dates: start: 20231121, end: 20231121
  152. XIFAXAN [Concomitant]
     Active Substance: RIFAXIMIN
     Indication: Product used for unknown indication
     Dosage: GIVEN 0929, 2027
     Route: 048
     Dates: start: 20231122, end: 20231122
  153. XIFAXAN [Concomitant]
     Active Substance: RIFAXIMIN
     Indication: Product used for unknown indication
     Dosage: GIVEN 0804, 2026
     Route: 048
     Dates: start: 20231123, end: 20231123
  154. XIFAXAN [Concomitant]
     Active Substance: RIFAXIMIN
     Indication: Product used for unknown indication
     Dosage: GIVEN 0833, 2043
     Route: 048
     Dates: start: 20231124, end: 20231124
  155. XIFAXAN [Concomitant]
     Active Substance: RIFAXIMIN
     Indication: Product used for unknown indication
     Dosage: GIVEN 0825, 2002
     Route: 048
     Dates: start: 20231125, end: 20231125
  156. XIFAXAN [Concomitant]
     Active Substance: RIFAXIMIN
     Indication: Product used for unknown indication
     Dosage: GIVEN 0810
     Route: 048
     Dates: start: 20231126, end: 20231126
  157. HYDRALAZINE [Concomitant]
     Active Substance: HYDRALAZINE HYDROCHLORIDE
     Indication: Product used for unknown indication
     Route: 048
     Dates: start: 20231121, end: 20231126
  158. K-PHOS- Neutral [Concomitant]
     Indication: Product used for unknown indication
     Dosage: 250 MG, 500 MG QID. HOLD FOR SERUM PHOS }= 4.5 MG/DL. HOLD IF PATIENT OFF CRRT } 4 HRS
     Route: 048
     Dates: start: 20231122, end: 20231124
  159. CUBICIN [Concomitant]
     Active Substance: DAPTOMYCIN
     Indication: Urogenital disorder
     Dosage: 850 MG IN SODIUM CHLORIDE 0.9 % IVPB
     Dates: start: 20231201, end: 20231213
  160. CUBICIN [Concomitant]
     Active Substance: DAPTOMYCIN
     Indication: Urogenital disorder
     Dosage: 750 MG IN SODIUM CHLORIDE 0.9 % IVPB Q48H
     Dates: start: 20231219
  161. CELLCEPT [Concomitant]
     Active Substance: MYCOPHENOLATE MOFETIL
     Indication: Transplant
     Dosage: 500 MG Q12H. ADJUSTED TO 360 MG BID
     Route: 048
  162. TACROLIMUS [Concomitant]
     Active Substance: TACROLIMUS
     Indication: Transplant
     Dosage: 1 MG Q12H. ADJUSTED TO 2 MG BID
  163. ACTIGALL [Concomitant]
     Active Substance: URSODIOL
     Indication: Transplant
     Route: 048
     Dates: start: 20231130
  164. ASPIRIN [Concomitant]
     Active Substance: ASPIRIN
     Indication: Transplant
     Dates: start: 20231127, end: 20231213
  165. ROXICODONE [Concomitant]
     Active Substance: OXYCODONE HYDROCHLORIDE
     Indication: Pain management
     Dosage: IMMEDIATE RELEASE 2.5 MG - 5 MG PRN
     Route: 048
  166. DIFLUCAN [Concomitant]
     Active Substance: FLUCONAZOLE
     Indication: Antifungal prophylaxis
     Dosage: 200 MG IN SODIUM CHLORIDE IVPB PREMIX. GIVEN 1829
     Dates: start: 20231126, end: 20231126
  167. DIFLUCAN [Concomitant]
     Active Substance: FLUCONAZOLE
     Indication: Antifungal prophylaxis
     Dates: start: 20231127, end: 20231206
  168. DIFLUCAN [Concomitant]
     Active Substance: FLUCONAZOLE
     Indication: Antifungal prophylaxis
     Route: 048
     Dates: start: 20231211, end: 20240115
  169. DILAUDID [Concomitant]
     Active Substance: HYDROMORPHONE HYDROCHLORIDE
     Indication: Pain management
     Dosage: .5 MG/0.5 ML INJECTION SYRINGE 0.25 MG ONE DOSE. GIVEN 2328
     Dates: start: 20231122, end: 20231122
  170. DILAUDID [Concomitant]
     Active Substance: HYDROMORPHONE HYDROCHLORIDE
     Indication: Pain management
     Dosage: .5 MG/0.5 ML INJECTION SYRINGE 0.25 MG ONE DOSE. GIVEN 2140
     Dates: start: 20231123, end: 20231123
  171. DILAUDID [Concomitant]
     Active Substance: HYDROMORPHONE HYDROCHLORIDE
     Indication: Pain management
     Dosage: 0.5 MG/0.5 ML INJECTION SYRINGE 0.25 MG ONCE
     Dates: start: 20231129, end: 20231129
  172. TPN [Concomitant]
     Active Substance: AMINO ACIDS\DEXTROSE\ELECTROLYTES NOS\SOYBEAN OIL
     Indication: Transplant
     Dosage: SMOFLIPID EMULSION 20% INFUSION 240 ML
     Dates: start: 20231206, end: 20231212
  173. HEPARIN [Concomitant]
     Active Substance: HEPARIN SODIUM
     Indication: Transplant
     Dosage: 5,000 UNITS SQ Q12H, THEN Q8H
     Route: 058
  174. HEPARIN [Concomitant]
     Active Substance: HEPARIN SODIUM
     Indication: Transplant
     Dosage: DRIP WITH PRN BOLUS DOSES, ULTIMATELY TRANSITIONED TO WARFARIN PO
     Dates: start: 20231204
  175. WARFARIN [Concomitant]
     Active Substance: WARFARIN
     Indication: Deep vein thrombosis
     Dosage: 5 MG TRANSITIONED TO 7.5 MG DAILY
     Dates: start: 20231220
  176. SOLU-MEDROL [Concomitant]
     Active Substance: METHYLPREDNISOLONE SODIUM SUCCINATE
     Indication: Product used for unknown indication
     Dosage: 500 MG IN SODIUM CHLORIDE 0.9 % IVPB GIVEN 1917
     Dates: start: 20231127, end: 20231127
  177. SOLU-MEDROL [Concomitant]
     Active Substance: METHYLPREDNISOLONE SODIUM SUCCINATE
     Indication: Product used for unknown indication
     Dosage: 250 MG. GIVEN 1325
     Dates: start: 20231127, end: 20231127
  178. SOLU-MEDROL [Concomitant]
     Active Substance: METHYLPREDNISOLONE SODIUM SUCCINATE
     Indication: Product used for unknown indication
     Dosage: 80 MG. GIVEN 0843
     Dates: start: 20231128, end: 20231128
  179. PREDNISONE [Concomitant]
     Active Substance: PREDNISONE
     Indication: Product used for unknown indication
     Dosage: TAPER: 80MG, THEN 60MG, THEN 40MG, THEN 20MG QD
     Dates: start: 20231129, end: 20240110
  180. PREDNISONE [Concomitant]
     Active Substance: PREDNISONE
     Indication: Product used for unknown indication
     Dates: start: 20231202
  181. CARVEDILOL [Concomitant]
     Active Substance: CARVEDILOL
     Indication: Product used for unknown indication
     Dosage: 6.25 MG BID. ADJUSTED TO 25 MG BID
     Dates: start: 20231130
  182. CEFDINIR [Concomitant]
     Active Substance: CEFDINIR
     Indication: Urinary tract infection
     Dosage: THERAPY FREQUENCY, INSTRUCTIONS UNKNOWN
     Dates: start: 202306
  183. DELTASONE [Concomitant]
     Active Substance: PREDNISONE
     Indication: Product used for unknown indication
     Dosage: BEFORE MEALS. THERAPY DATES UNKNOWN
  184. TOPAMAX [Concomitant]
     Active Substance: TOPIRAMATE
     Indication: Product used for unknown indication
     Dosage: BEFORE MEALS. THERAPY DATES UNKNOWN
  185. LIDEX [Concomitant]
     Active Substance: FLUOCINONIDE
     Indication: Product used for unknown indication
     Dosage: SMALL AMOUNT TO AFFECTED AREA BID PRN. THERAPY DATES UNKNOWN

REACTIONS (8)
  - Acute on chronic liver failure [Not Recovered/Not Resolved]
  - Renal failure [Unknown]
  - Ascites [Unknown]
  - Hepatic cirrhosis [Unknown]
  - Portal hypertension [Unknown]
  - Sepsis [Unknown]
  - Septic shock [Unknown]
  - Ischaemic hepatitis [Unknown]
